FAERS Safety Report 9163245 (Version 3)
Quarter: 2013Q2

REPORT INFORMATION
  Report Type: Spontaneous
  Country: US (occurrence: US)
  Receive Date: 20130314
  Receipt Date: 20130403
  Transmission Date: 20140414
  Serious: No
  Sender: FDA-Public Use
  Company Number: US-B.I. PHARMACEUTICALS,INC./RIDGEFIELD-2013-BI-06484BP

PATIENT
  Age: 83 Year
  Sex: Female

DRUGS (15)
  1. SPIRIVA [Suspect]
     Indication: DYSPNOEA
     Dosage: 18 MCG
     Route: 055
     Dates: start: 20130305, end: 20130316
  2. SPIRIVA [Suspect]
     Indication: WHEEZING
  3. GEMFIBROZIL [Concomitant]
     Indication: BLOOD TRIGLYCERIDES INCREASED
     Dosage: 1200 MG
     Route: 048
  4. ZOLOFT [Concomitant]
     Route: 048
  5. AMLODIPINE [Concomitant]
     Indication: HYPERTENSION
     Dosage: 10 MG
     Route: 048
  6. POTASSIUM CHLORIDE [Concomitant]
     Indication: BLOOD POTASSIUM DECREASED
     Dosage: 10 MEQ
     Route: 048
  7. LEVOTHYROXINE [Concomitant]
     Route: 048
  8. FUROSEMIDE [Concomitant]
     Indication: FLUID RETENTION
     Dosage: 80 MG
     Route: 048
  9. BENICAR [Concomitant]
     Route: 048
  10. VENTOLIN [Concomitant]
     Indication: DYSPNOEA
  11. ASPIRIN [Concomitant]
     Dosage: 81 MG
     Route: 048
  12. FISH OIL [Concomitant]
     Route: 048
  13. LOSARTAN [Concomitant]
     Indication: HYPERTENSION
     Dosage: 100 MG
     Route: 048
  14. SERTRALINE [Concomitant]
     Indication: DEPRESSION
     Dosage: 50 MG
     Route: 048
  15. SIMVASTATIN [Concomitant]
     Indication: BLOOD CHOLESTEROL INCREASED
     Dosage: 5 MG
     Route: 048

REACTIONS (5)
  - Dyspnoea [Not Recovered/Not Resolved]
  - Dyspnoea [Not Recovered/Not Resolved]
  - Product quality issue [Recovered/Resolved]
  - Cough [Recovered/Resolved]
  - Dyspnoea [Not Recovered/Not Resolved]
